FAERS Safety Report 21962494 (Version 1)
Quarter: 2023Q1

REPORT INFORMATION
  Report Type: Other
  Country: None (occurrence: ES)
  Receive Date: 20230207
  Receipt Date: 20230207
  Transmission Date: 20230418
  Serious: Yes (Hospitalization, Other)
  Sender: FDA-Public Use
  Company Number: ES-Spectra Medical Devices, LLC-2137612

PATIENT
  Age: 42 Year
  Sex: Female
  Weight: 42 kg

DRUGS (1)
  1. LIDOCAINE HYDROCHLORIDE ANHYDROUS [Suspect]
     Active Substance: LIDOCAINE HYDROCHLORIDE ANHYDROUS
     Indication: Medical device implantation
     Route: 058

REACTIONS (11)
  - Dry mouth [Unknown]
  - Paraesthesia oral [Unknown]
  - Muscle rigidity [Unknown]
  - Loss of consciousness [Unknown]
  - Anisocoria [Recovered/Resolved]
  - Seizure [Recovered/Resolved]
  - Cardiotoxicity [Unknown]
  - Toxicity to various agents [Unknown]
  - Sinus tachycardia [Unknown]
  - Overdose [Unknown]
  - Blood pressure increased [Recovered/Resolved]
